FAERS Safety Report 7100267-5 (Version None)
Quarter: 2010Q4

REPORT INFORMATION
  Report Type: 
  Country: None (occurrence: None)
  Receive Date: 20101112
  Receipt Date: 20101101
  Transmission Date: 20110411
  Serious: Yes (Hospitalization)
  Sender: FDA-Public Use
  Company Number: IE-GILEAD-IE-CVT-100551

PATIENT
  Age: 75 Year
  Sex: Male

DRUGS (22)
  1. RANEXA [Suspect]
     Indication: ANGINA PECTORIS
     Route: 048
     Dates: start: 20100614
  2. BISOPROLOL FUMARATE [Concomitant]
  3. ELANTAN [Concomitant]
  4. OMACOR [Concomitant]
  5. MOTILIUM                           /00498201/ [Concomitant]
  6. OMNIGEL [Concomitant]
  7. LEXOTAN [Concomitant]
  8. AMLODIPINE [Concomitant]
  9. ATACAND [Concomitant]
  10. CRESTOR [Concomitant]
  11. FUROSEMIDE                         /00032601/ [Concomitant]
  12. ASPIRIN [Concomitant]
  13. METARAMINOL BITARTRATE [Concomitant]
  14. PONSTAN [Concomitant]
  15. TRAVATAN [Concomitant]
  16. BETOPTIC [Concomitant]
  17. PROTIUM [Concomitant]
  18. NORTEN [Concomitant]
  19. IRON [Concomitant]
  20. MACUSHIELD [Concomitant]
  21. LACRI-LUBE [Concomitant]
  22. EQUANIL [Concomitant]

REACTIONS (1)
  - CHEST PAIN [None]
